FAERS Safety Report 5683765-0 (Version None)
Quarter: 2008Q1

REPORT INFORMATION
  Report Type: 
  Country: None (occurrence: None)
  Receive Date: 20080328
  Receipt Date: 20061024
  Transmission Date: 20080703
  Serious: Yes (Hospitalization)
  Sender: FDA-Public Use
  Company Number: US-BAYER-US-2006-025693

PATIENT
  Age: 27 Year
  Sex: Female
  Weight: 68 kg

DRUGS (1)
  1. MIRENA [Suspect]
     Indication: CONTRACEPTION
     Route: 015
     Dates: start: 20060815, end: 20060823

REACTIONS (4)
  - ABDOMINAL PAIN LOWER [None]
  - NAUSEA [None]
  - POST PROCEDURAL HAEMORRHAGE [None]
  - UTERINE RUPTURE [None]
